FAERS Safety Report 12911221 (Version 2)
Quarter: 2016Q4

REPORT INFORMATION
  Report Type: Spontaneous
  Country: US (occurrence: US)
  Receive Date: 20161104
  Receipt Date: 20161212
  Transmission Date: 20170207
  Serious: No
  Sender: FDA-Public Use
  Company Number: US-PFIZER INC-2016511063

PATIENT
  Age: 46 Year
  Sex: Female

DRUGS (1)
  1. ADVIL [Suspect]
     Active Substance: IBUPROFEN
     Indication: HEADACHE
     Dosage: 256 MG, 1X/DAY
     Dates: start: 20161101

REACTIONS (2)
  - Foreign body [Recovered/Resolved]
  - Oesophageal irritation [Not Recovered/Not Resolved]

NARRATIVE: CASE EVENT DATE: 20161101
